FAERS Safety Report 6169527-9 (Version None)
Quarter: 2009Q2

REPORT INFORMATION
  Report Type: 
  Country: None (occurrence: None)
  Receive Date: 20090428
  Receipt Date: 20090427
  Transmission Date: 20091009
  Serious: Yes (Hospitalization, Other)
  Sender: FDA-Public Use
  Company Number: US-JNJFOC-20090306616

PATIENT
  Age: 45 Year
  Sex: Female
  Weight: 52.16 kg

DRUGS (4)
  1. LEVAQUIN [Suspect]
     Indication: SINUSITIS
     Route: 048
  2. LEVAQUIN [Suspect]
     Indication: SINUS OPERATION
     Route: 048
  3. ANESTHESIA [Suspect]
     Indication: RECTAL ABSCESS
     Route: 065
  4. ANXIETY MEDICATION [Concomitant]
     Route: 065

REACTIONS (8)
  - DERMATITIS ALLERGIC [None]
  - HYPOAESTHESIA [None]
  - MUSCULAR WEAKNESS [None]
  - PALPITATIONS [None]
  - PARAESTHESIA [None]
  - RECTAL ABSCESS [None]
  - RENAL FAILURE [None]
  - RESPIRATORY FAILURE [None]
